FAERS Safety Report 8121400-2 (Version None)
Quarter: 2012Q1

REPORT INFORMATION
  Report Type: 
  Country: None (occurrence: None)
  Receive Date: 20120208
  Receipt Date: 20120131
  Transmission Date: 20120608
  Serious: No
  Sender: FDA-Public Use
  Company Number: US-PFIZER INC-2012027578

PATIENT
  Sex: Female
  Weight: 60.771 kg

DRUGS (4)
  1. ACCUPRIL [Suspect]
     Dosage: 20 MG, 1X/DAY
  2. LIPITOR [Suspect]
     Dosage: 10 MG, 1X/DAY
  3. PREMARIN [Suspect]
     Dosage: UNK
  4. PERCOCET [Concomitant]
     Dosage: 5/325 MG, HALF A TABLET EVERY 6 HOURS AS NEEDED

REACTIONS (10)
  - VULVOVAGINAL DISCOMFORT [None]
  - CONDITION AGGRAVATED [None]
  - VULVOVAGINAL ERYTHEMA [None]
  - HAEMOPTYSIS [None]
  - GINGIVAL BLEEDING [None]
  - PAIN IN EXTREMITY [None]
  - PRURITUS [None]
  - VULVOVAGINAL PRURITUS [None]
  - ARTHRALGIA [None]
  - NERVOUSNESS [None]
